FAERS Safety Report 15532207 (Version 1)
Quarter: 2018Q4

REPORT INFORMATION
  Report Type: Report from Study
  Country: ES (occurrence: ES)
  Receive Date: 20181019
  Receipt Date: 20181019
  Transmission Date: 20190205
  Serious: Yes (Hospitalization)
  Sender: FDA-Public Use
  Company Number: ES-BAUSCH-BL-2018-028410

PATIENT
  Age: 66 Year
  Sex: Male
  Weight: 120 kg

DRUGS (3)
  1. DEXAMETHASONE. [Suspect]
     Active Substance: DEXAMETHASONE
     Indication: PLASMA CELL MYELOMA
     Dosage: DOSAGE FORM: UNSPECIFIED; FOUR CYCLES
     Route: 065
  2. VELCADE [Suspect]
     Active Substance: BORTEZOMIB
     Indication: PLASMA CELL MYELOMA
     Dosage: DOSAGE FORM: LYOPHILIZED POWDER; FOUR CYCLES
     Route: 065
  3. CYCLOPHOSPHAMIDE. [Suspect]
     Active Substance: CYCLOPHOSPHAMIDE
     Indication: PLASMA CELL MYELOMA
     Dosage: DOSAGE FORM: UNSPECIFIED; FOUR CYCLES
     Route: 065

REACTIONS (4)
  - Peripheral sensory neuropathy [Unknown]
  - Respiratory tract infection [Unknown]
  - Off label use [Unknown]
  - Product use issue [Unknown]
